FAERS Safety Report 21040024 (Version 2)
Quarter: 2022Q3

REPORT INFORMATION
  Report Type: Report from Study
  Country: US (occurrence: US)
  Receive Date: 20220704
  Receipt Date: 20220708
  Transmission Date: 20221027
  Serious: Yes (Hospitalization)
  Sender: FDA-Public Use
  Company Number: US-PFIZER INC-PV202200014675

PATIENT
  Age: 73 Year
  Sex: Female
  Weight: 52 kg

DRUGS (39)
  1. PALBOCICLIB [Suspect]
     Active Substance: PALBOCICLIB
     Indication: Breast cancer metastatic
     Dosage: 125 MG EVERYDAY
     Route: 048
     Dates: start: 20170911
  2. PALBOCICLIB [Suspect]
     Active Substance: PALBOCICLIB
     Dosage: 75 MG, 1X/DAY
     Route: 048
     Dates: start: 20220605
  3. LETROZOLE [Suspect]
     Active Substance: LETROZOLE
     Indication: Breast cancer metastatic
     Dosage: 2.5 MG, 1X/DAY
     Route: 048
     Dates: start: 20170911
  4. LETROZOLE [Suspect]
     Active Substance: LETROZOLE
     Dosage: 2.5 MG, 1X/DAY
     Route: 048
     Dates: start: 20220611
  5. INAVOLISIB [Suspect]
     Active Substance: INAVOLISIB
     Indication: Breast cancer metastatic
     Dosage: 9 MG, 1X/DAY
     Route: 048
     Dates: start: 20170911
  6. INAVOLISIB [Suspect]
     Active Substance: INAVOLISIB
     Dosage: 6 MG, 1X/DAY
     Route: 048
     Dates: start: 20220605
  7. CALCIUM [Concomitant]
     Active Substance: CALCIUM
     Dosage: UNK
     Route: 048
     Dates: start: 20140716
  8. ZYRTEC [Concomitant]
     Active Substance: CETIRIZINE HYDROCHLORIDE
     Indication: Hypersensitivity
     Dosage: UNK
     Route: 048
     Dates: start: 20160901
  9. DESONIDE [Concomitant]
     Active Substance: DESONIDE
     Indication: Rash
     Dosage: UNK
     Route: 062
     Dates: start: 20160123
  10. FONDAPARINUX [Concomitant]
     Active Substance: FONDAPARINUX
     Indication: Deep vein thrombosis
     Dosage: UNK
     Route: 058
     Dates: start: 20150105
  11. CALCIUM CHLORIDE\MAGNESIUM CHLORIDE [Concomitant]
     Active Substance: CALCIUM CHLORIDE\MAGNESIUM CHLORIDE
     Indication: Blood magnesium decreased
     Dosage: UNK
     Route: 048
     Dates: start: 20170123
  12. ATROPINE\DIPHENOXYLATE [Concomitant]
     Active Substance: ATROPINE\DIPHENOXYLATE
     Dosage: UNK
     Route: 048
     Dates: start: 20170123
  13. WELLBUTRIN [Concomitant]
     Active Substance: BUPROPION HYDROCHLORIDE
     Indication: Depression
     Dosage: UNK
     Route: 048
     Dates: start: 20170905
  14. ZANTAC [Concomitant]
     Active Substance: RANITIDINE HYDROCHLORIDE
     Indication: Gastrooesophageal reflux disease
     Dosage: UNK
     Route: 065
     Dates: start: 20171002
  15. LOMOTIL [Concomitant]
     Active Substance: ATROPINE SULFATE\DIPHENOXYLATE HYDROCHLORIDE
     Indication: Diarrhoea
     Dosage: UNK
     Route: 065
  16. CLOBETASOL [Concomitant]
     Active Substance: CLOBETASOL
     Indication: Mucosal inflammation
     Dosage: UNK
     Route: 061
     Dates: start: 20180501
  17. ALPRAZOLAM [Concomitant]
     Active Substance: ALPRAZOLAM
     Indication: Anxiety
     Dosage: UNK
     Route: 048
     Dates: start: 20180308
  18. OMEPRAZOLE [Concomitant]
     Active Substance: OMEPRAZOLE
     Indication: Gastrooesophageal reflux disease
     Dosage: UNK
     Route: 048
     Dates: start: 20180529
  19. LANSOPRAZOLE [Concomitant]
     Active Substance: LANSOPRAZOLE
     Indication: Gastrooesophageal reflux disease
     Dosage: UNK
     Route: 065
  20. CANNABIDIOL\HERBALS [Concomitant]
     Active Substance: CANNABIDIOL\HERBALS
     Dosage: UNK
     Route: 048
     Dates: start: 20181030
  21. RESTASIS [Concomitant]
     Active Substance: CYCLOSPORINE
     Indication: Dry eye
     Dosage: UNK
     Route: 047
     Dates: start: 20190107
  22. POTASSIUM CHLORIDE [Concomitant]
     Active Substance: POTASSIUM CHLORIDE
     Indication: Hypokalaemia
     Dosage: UNK
     Route: 048
     Dates: start: 20190326
  23. ZINC [Concomitant]
     Active Substance: ZINC
     Dosage: UNK
     Route: 048
     Dates: start: 20190528
  24. PHENERGAN [Concomitant]
     Active Substance: PROMETHAZINE HYDROCHLORIDE
     Indication: Nausea
     Dosage: UNK
     Route: 065
     Dates: start: 20190820
  25. ACETAMINOPHEN [Concomitant]
     Active Substance: ACETAMINOPHEN
     Indication: Back pain
     Dosage: UNK
     Route: 042
     Dates: start: 20191126
  26. MS CONTIN [Concomitant]
     Active Substance: MORPHINE SULFATE
     Indication: Back pain
     Dosage: UNK
     Route: 048
     Dates: start: 20191127
  27. MIRTAZAPINE [Concomitant]
     Active Substance: MIRTAZAPINE
     Dosage: UNK
     Route: 048
     Dates: start: 20200113
  28. FERROUS SULFATE [Concomitant]
     Active Substance: FERROUS SULFATE
     Indication: Anaemia
     Dosage: UNK
     Route: 048
     Dates: start: 20200121
  29. PEPCID [Concomitant]
     Active Substance: FAMOTIDINE
     Indication: Gastrooesophageal reflux disease
     Dosage: UNK
     Route: 048
     Dates: start: 20200417
  30. ALENDRONATE [Concomitant]
     Active Substance: ALENDRONATE SODIUM
     Indication: Osteoporosis
     Dosage: UNK
     Route: 048
     Dates: start: 20200212
  31. TRIAMCINOLONE [Concomitant]
     Active Substance: TRIAMCINOLONE
     Dosage: UNK
     Route: 061
     Dates: start: 20201106
  32. NARCAN [Concomitant]
     Active Substance: NALOXONE HYDROCHLORIDE
     Dosage: UNK
     Route: 045
     Dates: start: 20201222
  33. CALCITRIOL [Concomitant]
     Active Substance: CALCITRIOL
     Dosage: UNK
     Route: 048
     Dates: start: 20210224
  34. NIFEDIPINE [Concomitant]
     Active Substance: NIFEDIPINE
     Dosage: UNK
     Route: 061
     Dates: start: 20210622
  35. FENTANYL [Concomitant]
     Active Substance: FENTANYL
     Dosage: UNK
     Route: 062
     Dates: start: 20200901
  36. FLUOXETINE [Concomitant]
     Active Substance: FLUOXETINE HYDROCHLORIDE
     Indication: Depression
     Dosage: UNK
     Route: 048
     Dates: start: 20211207
  37. BUPROPION [Concomitant]
     Active Substance: BUPROPION
     Indication: Depression
     Dosage: UNK
     Route: 048
     Dates: start: 20211026
  38. ARIMIDEX [Concomitant]
     Active Substance: ANASTROZOLE
     Indication: Neoplasm malignant
     Dosage: UNK
  39. TAMOXIFEN [Concomitant]
     Active Substance: TAMOXIFEN
     Indication: Neoplasm malignant
     Dosage: UNK

REACTIONS (1)
  - Joint effusion [Recovered/Resolved]

NARRATIVE: CASE EVENT DATE: 20220612
